FAERS Safety Report 17926228 (Version 2)
Quarter: 2020Q3

REPORT INFORMATION
  Report Type: Report from Study
  Country: CN (occurrence: CN)
  Receive Date: 20200623
  Receipt Date: 20200707
  Transmission Date: 20201103
  Serious: Yes (Other)
  Sender: FDA-Public Use
  Company Number: CN-ROCHE-2627638

PATIENT

DRUGS (2)
  1. CISPLATIN. [Concomitant]
     Active Substance: CISPLATIN
     Indication: NASOPHARYNGEAL CANCER
     Route: 042
  2. CAPECITABINE. [Suspect]
     Active Substance: CAPECITABINE
     Indication: NASOPHARYNGEAL CANCER
     Route: 048

REACTIONS (6)
  - Cranial nerve disorder [Unknown]
  - Neuropathy peripheral [Unknown]
  - Central nervous system necrosis [Unknown]
  - Endocrine disorder [Unknown]
  - Deafness [Unknown]
  - Tissue injury [Unknown]
